FAERS Safety Report 13208403 (Version 1)
Quarter: 2017Q1

REPORT INFORMATION
  Report Type: Spontaneous
  Country: US (occurrence: US)
  Receive Date: 20170209
  Receipt Date: 20170209
  Transmission Date: 20170428
  Serious: No
  Sender: FDA-Public Use
  Company Number: US-ROCHE-1730375

PATIENT
  Sex: Male

DRUGS (2)
  1. XOLAIR [Suspect]
     Active Substance: OMALIZUMAB
     Route: 058
  2. XOLAIR [Suspect]
     Active Substance: OMALIZUMAB
     Indication: CHRONIC SPONTANEOUS URTICARIA
     Route: 058
     Dates: start: 20150701

REACTIONS (7)
  - Malaise [Unknown]
  - Dry skin [Unknown]
  - Arthropathy [Unknown]
  - Off label use [Unknown]
  - Mental disorder [Unknown]
  - Skin irritation [Unknown]
  - Pruritus [Unknown]
